FAERS Safety Report 6661424-5 (Version None)
Quarter: 2010Q1

REPORT INFORMATION
  Report Type: 
  Country: None (occurrence: None)
  Receive Date: 20100331
  Receipt Date: 20100318
  Transmission Date: 20100710
  Serious: Yes (Life-Threatening, Hospitalization)
  Sender: FDA-Public Use
  Company Number: CH-WATSON-2010-02450

PATIENT
  Age: 35 Year
  Sex: Female

DRUGS (1)
  1. VERAPAMIL HCL [Suspect]
     Indication: MIGRAINE
     Dosage: 4.8 G, 20 TABS OF 240 MG EACH
     Route: 048

REACTIONS (12)
  - ATRIOVENTRICULAR BLOCK COMPLETE [None]
  - BRADYCARDIA [None]
  - CARDIAC ARREST [None]
  - CARDIOGENIC SHOCK [None]
  - COMA [None]
  - GRAND MAL CONVULSION [None]
  - HYPOTENSION [None]
  - ILEUS PARALYTIC [None]
  - POISONING [None]
  - PULMONARY OEDEMA [None]
  - RENAL FAILURE [None]
  - SUICIDE ATTEMPT [None]
